FAERS Safety Report 4545083-3 (Version None)
Quarter: 2005Q1

REPORT INFORMATION
  Report Type: 
  Country: None (occurrence: None)
  Receive Date: 20050103
  Receipt Date: 20041221
  Transmission Date: 20050727
  Serious: Yes (Hospitalization)
  Sender: FDA-Public Use
  Company Number: 2004116164

PATIENT
  Age: 15 Year
  Sex: Male

DRUGS (2)
  1. GENOTONORM (SOMATROPIN) [Suspect]
     Indication: HYPOPITUITARISM
     Dosage: 1.8 MG (1.8 MG, DAILY, SUBCUTANEOUS
     Route: 058
     Dates: start: 20040214
  2. ENALAPRIL (ENALAPRIL) [Concomitant]

REACTIONS (1)
  - KYPHOSIS [None]
